FAERS Safety Report 4768513-0 (Version None)
Quarter: 2005Q3

REPORT INFORMATION
  Report Type: 
  Country: None (occurrence: None)
  Receive Date: 20050914
  Receipt Date: 20050907
  Transmission Date: 20060218
  Serious: Yes (Other)
  Sender: FDA-Public Use
  Company Number: US-SANOFI-SYNTHELABO-A03200502822

PATIENT
  Sex: Female

DRUGS (3)
  1. ELOXATIN [Suspect]
     Indication: COLON CANCER
     Route: 042
     Dates: start: 20050711, end: 20050711
  2. FLUOROURACIL [Concomitant]
     Route: 042
  3. LEUCOVORIN [Concomitant]
     Route: 042

REACTIONS (10)
  - ABDOMINAL PAIN [None]
  - ABDOMINAL PAIN LOWER [None]
  - ADNEXA UTERI PAIN [None]
  - BRONCHOSPASM [None]
  - LARYNGOSPASM [None]
  - OVARIAN CYST RUPTURED [None]
  - PARAESTHESIA [None]
  - PLATELET COUNT DECREASED [None]
  - PRURITUS [None]
  - RESTLESSNESS [None]
